FAERS Safety Report 12970290 (Version 2)
Quarter: 2016Q4

REPORT INFORMATION
  Report Type: Spontaneous
  Country: CH (occurrence: DE)
  Receive Date: 20161123
  Receipt Date: 20161215
  Transmission Date: 20170207
  Serious: Yes (Other)
  Sender: FDA-Public Use
  Company Number: CH-LPDUSPRD-20161049

PATIENT
  Age: 67 Year
  Sex: Male
  Weight: 95 kg

DRUGS (1)
  1. VENOFER [Suspect]
     Active Substance: IRON SUCROSE
     Dosage: UNKNOWN
     Route: 041
     Dates: start: 201607, end: 2016

REACTIONS (4)
  - Off label use [Unknown]
  - Pulmonary embolism [Unknown]
  - Venous operation [Unknown]
  - Thrombosis [Unknown]

NARRATIVE: CASE EVENT DATE: 201502
